FAERS Safety Report 22071764 (Version 4)
Quarter: 2023Q2

REPORT INFORMATION
  Report Type: Spontaneous
  Country: US (occurrence: US)
  Receive Date: 20230307
  Receipt Date: 20230405
  Transmission Date: 20230722
  Serious: No
  Sender: FDA-Public Use
  Company Number: US-JNJFOC-20230311542

PATIENT
  Age: 4 Decade
  Sex: Female

DRUGS (1)
  1. TREMFYA [Suspect]
     Active Substance: GUSELKUMAB
     Indication: Psoriasis
     Route: 065
     Dates: start: 2022

REACTIONS (4)
  - Device issue [Unknown]
  - Device leakage [Unknown]
  - Off label use [Unknown]
  - Product dose omission issue [Unknown]
